FAERS Safety Report 10159538 (Version 2)
Quarter: 2014Q3

REPORT INFORMATION
  Report Type: Spontaneous
  Country: FR (occurrence: FR)
  Receive Date: 20140508
  Receipt Date: 20140806
  Transmission Date: 20150326
  Serious: Yes (Other)
  Sender: FDA-Public Use
  Company Number: 2014SP002525

PATIENT
  Age: 57 Year
  Sex: Female

DRUGS (4)
  1. NEBICARD-H [Concomitant]
     Dates: start: 20120314
  2. FOLIC ACID. [Concomitant]
     Active Substance: FOLIC ACID
  3. METHOTREXATE [Suspect]
     Active Substance: METHOTREXATE
     Indication: RHEUMATOID ARTHRITIS
     Dates: start: 2011
  4. ETANERCEPT [Suspect]
     Active Substance: ETANERCEPT
     Indication: RHEUMATOID ARTHRITIS
     Dates: start: 201402

REACTIONS (8)
  - Intervertebral disc degeneration [Unknown]
  - Osteoarthritis [Unknown]
  - Feeling abnormal [Unknown]
  - Injection site irritation [Unknown]
  - Back pain [Unknown]
  - Joint range of motion decreased [Unknown]
  - Injection site reaction [Unknown]
  - Injection site pruritus [Not Recovered/Not Resolved]
